FAERS Safety Report 10896474 (Version 1)
Quarter: 2015Q1

REPORT INFORMATION
  Report Type: Spontaneous
  Country: IT (occurrence: IT)
  Receive Date: 20150309
  Receipt Date: 20150309
  Transmission Date: 20150721
  Serious: Yes (Other)
  Sender: FDA-Public Use
  Company Number: IT-ROCHE-1549197

PATIENT
  Age: 83 Year
  Sex: Female

DRUGS (1)
  1. RIVOTRIL [Suspect]
     Active Substance: CLONAZEPAM
     Indication: SEDATION
     Dosage: 2.5 MG/ML ORAL DROPS, SOLUTION^ 10 ML BOTTLE
     Route: 048
     Dates: start: 20150304, end: 20150304

REACTIONS (5)
  - Bradyphrenia [Recovering/Resolving]
  - Bradykinesia [Recovering/Resolving]
  - Drug administration error [Unknown]
  - Confusional state [Recovering/Resolving]
  - Sopor [Recovering/Resolving]

NARRATIVE: CASE EVENT DATE: 20150304
